FAERS Safety Report 22083679 (Version 1)
Quarter: 2023Q1

REPORT INFORMATION
  Report Type: Spontaneous
  Country: FR (occurrence: FR)
  Receive Date: 20230310
  Receipt Date: 20230310
  Transmission Date: 20230417
  Serious: Yes (Hospitalization, Other)
  Sender: FDA-Public Use
  Company Number: None

PATIENT
  Age: 41 Year
  Sex: Female
  Weight: 80 kg

DRUGS (4)
  1. CLINDAMYCIN HYDROCHLORIDE [Suspect]
     Active Substance: CLINDAMYCIN HYDROCHLORIDE
     Indication: Infection
     Dosage: 300 MG, 3X/DAY
     Route: 048
     Dates: start: 20221215, end: 20221217
  2. PRISTINAMYCIN [Suspect]
     Active Substance: PRISTINAMYCIN
     Indication: Tonsillitis
     Dosage: 1000 MG, 3X/DAY
     Route: 048
     Dates: start: 20221125, end: 20221130
  3. PRISTINAMYCIN [Suspect]
     Active Substance: PRISTINAMYCIN
     Indication: Ear infection
     Dosage: 1000 MG, 3X/DAY
     Route: 048
     Dates: start: 20221205, end: 20221212
  4. PRISTINAMYCIN [Suspect]
     Active Substance: PRISTINAMYCIN
     Dosage: 1000 MG, 3X/DAY
     Route: 048
     Dates: start: 20221212, end: 20221216

REACTIONS (1)
  - Hepatic cytolysis [Recovered/Resolved]

NARRATIVE: CASE EVENT DATE: 20221217
